FAERS Safety Report 4610223-4 (Version None)
Quarter: 2005Q1

REPORT INFORMATION
  Report Type: 
  Country: None (occurrence: None)
  Receive Date: 20050314
  Receipt Date: 20050225
  Transmission Date: 20050727
  Serious: Yes (Hospitalization)
  Sender: FDA-Public Use
  Company Number: 2001-BP-00015

PATIENT
  Age: 44 Year
  Sex: Female
  Weight: 62.1 kg

DRUGS (5)
  1. NEVIRAPINE [Suspect]
     Indication: HIV INFECTION
     Dosage: 400 MG (200 MG, 1 TABLET BID), PO
     Route: 048
     Dates: start: 19990923
  2. EMTRICITABINE (BLIND) [Concomitant]
  3. LAMIVUDINE [Concomitant]
  4. STAVUDINE [Concomitant]
  5. EFQVIRENZ [Concomitant]

REACTIONS (3)
  - CHOLECYSTITIS [None]
  - CHOLELITHIASIS [None]
  - LACTIC ACIDOSIS [None]
